FAERS Safety Report 7916020-6 (Version None)
Quarter: 2011Q4

REPORT INFORMATION
  Report Type: 
  Country: None (occurrence: None)
  Receive Date: 20111115
  Receipt Date: 20111104
  Transmission Date: 20120403
  Serious: Yes (Other)
  Sender: FDA-Public Use
  Company Number: JP-ASTRAZENECA-2011SE68571

PATIENT
  Age: 75 Year
  Sex: Female

DRUGS (7)
  1. SEROQUEL [Suspect]
     Route: 048
     Dates: start: 20100101
  2. DOGMATYL [Suspect]
     Route: 048
     Dates: start: 20100101
  3. LUVOX [Suspect]
     Route: 065
  4. LUVOX [Suspect]
     Route: 065
     Dates: start: 20111001
  5. DOGMATYL [Suspect]
     Route: 048
  6. CYMBALTA [Suspect]
     Route: 048
  7. SEDIEL [Suspect]
     Route: 048

REACTIONS (4)
  - ABASIA [None]
  - BLOOD CREATINE PHOSPHOKINASE INCREASED [None]
  - SALIVARY HYPERSECRETION [None]
  - DYSKINESIA [None]
